FAERS Safety Report 25359923 (Version 2)
Quarter: 2025Q2

REPORT INFORMATION
  Report Type: Report from Study
  Country: US (occurrence: US)
  Receive Date: 20250526
  Receipt Date: 20250624
  Transmission Date: 20250717
  Serious: Yes (Other)
  Sender: ABBVIE
  Company Number: US-ABBVIE-6053093

PATIENT
  Age: 62 Year
  Sex: Female

DRUGS (2)
  1. HUMIRA [Suspect]
     Active Substance: ADALIMUMAB
     Indication: Psoriatic arthropathy
     Route: 058
  2. HUMIRA [Suspect]
     Active Substance: ADALIMUMAB
     Route: 058
     Dates: start: 20240327

REACTIONS (11)
  - Respiratory arrest [Not Recovered/Not Resolved]
  - Influenza [Recovering/Resolving]
  - Dyspnoea [Recovering/Resolving]
  - Nasopharyngitis [Recovering/Resolving]
  - Blood potassium decreased [Recovering/Resolving]
  - Blood iron decreased [Recovering/Resolving]
  - Oxygen saturation decreased [Recovering/Resolving]
  - Asthenia [Recovering/Resolving]
  - Visual impairment [Recovering/Resolving]
  - Memory impairment [Recovering/Resolving]
  - Weight decreased [Unknown]

NARRATIVE: CASE EVENT DATE: 20241207
